FAERS Safety Report 5908804-0 (Version None)
Quarter: 2008Q4

REPORT INFORMATION
  Report Type: 
  Country: None (occurrence: None)
  Receive Date: 20081006
  Receipt Date: 20080929
  Transmission Date: 20090506
  Serious: Yes (Other)
  Sender: FDA-Public Use
  Company Number: ES-CELGENEUS-144-21880-08091706

PATIENT
  Sex: Male

DRUGS (2)
  1. REVLIMID [Suspect]
     Indication: MYELOFIBROSIS
     Route: 048
     Dates: end: 20080301
  2. REVLIMID [Suspect]
     Route: 048
     Dates: start: 20080401, end: 20080924

REACTIONS (2)
  - ASCITES [None]
  - OEDEMA PERIPHERAL [None]
